FAERS Safety Report 9189962 (Version 1)
Quarter: 2013Q1

REPORT INFORMATION
  Report Type: Spontaneous
  Country: US (occurrence: None)
  Receive Date: 20120703
  Receipt Date: 20120703
  Transmission Date: 20140127
  Serious: Yes (Other)
  Sender: FDA-Public Use
  Company Number: PHEH2012US010815

PATIENT
  Age: 58 Year
  Sex: Male

DRUGS (2)
  1. GILENYA (FTY) CAPSULE, 0.5MG [Suspect]
     Route: 048
     Dates: start: 201106, end: 20120318
  2. VALTREX [Suspect]
     Dosage: UNK UKN , UNK

REACTIONS (8)
  - Facial paresis [None]
  - VIIth nerve paralysis [None]
  - Skin lesion [None]
  - Herpes zoster [None]
  - Alanine aminotransferase increased [None]
  - Lymphocyte percentage decreased [None]
  - Anxiety [None]
  - Herpes zoster oticus [None]
